FAERS Safety Report 11590105 (Version 1)
Quarter: 2015Q4

REPORT INFORMATION
  Report Type: Report from Study
  Country: RU (occurrence: RU)
  Receive Date: 20151002
  Receipt Date: 20151002
  Transmission Date: 20160304
  Serious: Yes (Hospitalization)
  Sender: FDA-Public Use
  Company Number: RU-BAYER-2015-426482

PATIENT
  Age: 76 Year
  Sex: Male
  Weight: 67.5 kg

DRUGS (7)
  1. URSODEOXYCHOLIC ACID [Concomitant]
     Active Substance: URSODIOL
  2. SORAFENIB (RAF KINASE INHIBITOR) [Suspect]
     Active Substance: SORAFENIB
     Indication: HEPATOCELLULAR CARCINOMA
     Dosage: 800 MG, QD
     Route: 048
     Dates: start: 20141114, end: 20141228
  3. LINEX [Concomitant]
  4. GLYCYRRHIZIC ACID [Concomitant]
     Active Substance: GLYCYRRHIZIN
  5. ETAMSYLATE [Concomitant]
     Active Substance: ETHAMSYLATE
  6. SORAFENIB (RAF KINASE INHIBITOR) [Suspect]
     Active Substance: SORAFENIB
     Indication: HEPATOCELLULAR CARCINOMA
     Dosage: 400 MG, QD
     Route: 048
     Dates: start: 20141229
  7. OMEPRAZOLE. [Concomitant]
     Active Substance: OMEPRAZOLE

REACTIONS (1)
  - Hepatic cirrhosis [Recovered/Resolved]

NARRATIVE: CASE EVENT DATE: 20150730
